FAERS Safety Report 16565114 (Version 2)
Quarter: 2019Q3

REPORT INFORMATION
  Report Type: Report from Study
  Country: NL (occurrence: NL)
  Receive Date: 20190712
  Receipt Date: 20190724
  Transmission Date: 20191004
  Serious: Yes (Hospitalization)
  Sender: FDA-Public Use
  Company Number: NL-ROCHE-2353036

PATIENT
  Age: 40 Year
  Sex: Male
  Weight: 93.6 kg

DRUGS (6)
  1. ESOMEPRAZOL [ESOMEPRAZOLE] [Concomitant]
     Active Substance: ESOMEPRAZOLE
     Route: 048
     Dates: start: 20190707
  2. VALACICLOVIR [Concomitant]
     Active Substance: VALACYCLOVIR HYDROCHLORIDE
     Route: 048
     Dates: start: 20190703, end: 20190707
  3. COTRIMOXAZOLE [Concomitant]
     Active Substance: SULFAMETHOXAZOLE\TRIMETHOPRIM
     Route: 048
     Dates: start: 20190703, end: 20190707
  4. ALLOPURINOL. [Concomitant]
     Active Substance: ALLOPURINOL
     Route: 048
     Dates: start: 20190703, end: 20190707
  5. METOCLOPRAMIDE. [Concomitant]
     Active Substance: METOCLOPRAMIDE
     Route: 048
     Dates: start: 20190701
  6. OBINUTUZUMAB. [Suspect]
     Active Substance: OBINUTUZUMAB
     Indication: CHRONIC LYMPHOCYTIC LEUKAEMIA
     Dosage: LAST DOSE PRIOR TO SAE ON 02/JUL/2019
     Route: 042
     Dates: start: 20190702

REACTIONS (1)
  - Thrombocytopenia [Recovered/Resolved]

NARRATIVE: CASE EVENT DATE: 20190707
